FAERS Safety Report 11634144 (Version 1)
Quarter: 2015Q4

REPORT INFORMATION
  Report Type: Spontaneous
  Country: US (occurrence: US)
  Receive Date: 20151015
  Receipt Date: 20151015
  Transmission Date: 20160304
  Serious: No
  Sender: FDA-Public Use
  Company Number: US-INDIVIOR-RB-73159-2014

PATIENT
  Age: 45 Year
  Sex: Female

DRUGS (3)
  1. METHADONE [Suspect]
     Active Substance: METHADONE HYDROCHLORIDE
     Indication: PRODUCT USED FOR UNKNOWN INDICATION
     Dosage: 120 MG, DAILY
     Route: 065
     Dates: start: 2002, end: 201410
  2. SUBOXONE [Suspect]
     Active Substance: BUPRENORPHINE HYDROCHLORIDE\NALOXONE HYDROCHLORIDE
     Indication: DRUG DEPENDENCE
     Dosage: 8 MG, BID
     Route: 060
     Dates: start: 20141031
  3. METHADONE [Suspect]
     Active Substance: METHADONE HYDROCHLORIDE
     Dosage: 30 MG, UNK
     Route: 065
     Dates: start: 201410

REACTIONS (6)
  - Mobility decreased [Not Recovered/Not Resolved]
  - Drug withdrawal syndrome [Not Recovered/Not Resolved]
  - Diarrhoea [Not Recovered/Not Resolved]
  - Chills [Not Recovered/Not Resolved]
  - Hyperhidrosis [Not Recovered/Not Resolved]
  - Pain [Not Recovered/Not Resolved]

NARRATIVE: CASE EVENT DATE: 20141031
